FAERS Safety Report 7251362-1 (Version None)
Quarter: 2011Q1

REPORT INFORMATION
  Report Type: 
  Country: None (occurrence: None)
  Receive Date: 20110110
  Receipt Date: 20110103
  Transmission Date: 20110831
  Serious: Yes (Other)
  Sender: FDA-Public Use
  Company Number: COL_03883_2011

PATIENT
  Sex: Female

DRUGS (5)
  1. LOSARTAN POTASSIUM [Concomitant]
  2. BUDESONIDE [Concomitant]
  3. MERIDOL CHLORHEXIDINE DIGLUCONATE 2 MG/ML OROMUCOSAL SOLUTION [Suspect]
     Indication: SURGERY
     Dosage: 1 DF TID ORAL
     Route: 048
     Dates: start: 20101230, end: 20110103
  4. MERIDOL CHLORHEXIDINE DIGLUCONATE 2 MG/ML OROMUCOSAL SOLUTION [Suspect]
     Indication: ORAL BACTERIAL INFECTION
     Dosage: 1 DF TID ORAL
     Route: 048
     Dates: start: 20101230, end: 20110103
  5. MERIDOL CHLORHEXIDINE DIGLUCONATE 2 MG/ML OROMUCOSAL SOLUTION [Suspect]
     Indication: DENTAL DISORDER PROPHYLAXIS
     Dosage: 1 DF TID ORAL
     Route: 048
     Dates: start: 20101230, end: 20110103

REACTIONS (1)
  - ANAPHYLACTIC REACTION [None]
